FAERS Safety Report 22305429 (Version 1)
Quarter: 2023Q2

REPORT INFORMATION
  Report Type: Spontaneous
  Country: CN (occurrence: CN)
  Receive Date: 20230510
  Receipt Date: 20230510
  Transmission Date: 20230721
  Serious: Yes (Other)
  Sender: FDA-Public Use
  Company Number: CN-PFIZER INC-PV202300083452

PATIENT
  Age: 51 Year
  Sex: Male
  Weight: 71 kg

DRUGS (4)
  1. ABROCITINIB [Suspect]
     Active Substance: ABROCITINIB
     Indication: Dermatitis atopic
     Dosage: 100 MG, 1X/DAY
     Route: 048
     Dates: start: 20230307, end: 20230321
  2. AMMONIUM GLYCYRRHIZATE\CYSTEINE HYDROCHLORIDE\GLYCINE [Concomitant]
     Active Substance: AMMONIUM GLYCYRRHIZATE\CYSTEINE HYDROCHLORIDE\GLYCINE
     Indication: Dermatitis atopic
     Dosage: 2 DF, 3X/DAY
     Route: 048
     Dates: start: 20230307, end: 20230321
  3. LEVOCETIRIZINE HYDROCHLORIDE [Concomitant]
     Active Substance: LEVOCETIRIZINE HYDROCHLORIDE
     Indication: Dermatitis atopic
     Dosage: 1 DF, 1X/DAY
     Route: 048
     Dates: start: 20230307, end: 20230320
  4. MOMETASONE FUROATE [Concomitant]
     Active Substance: MOMETASONE FUROATE
     Indication: Dermatitis atopic
     Dosage: 0.01 G, 1X/DAY
     Route: 061
     Dates: start: 20230307, end: 20230321

REACTIONS (2)
  - Herpes zoster [Recovered/Resolved]
  - Rash macular [Recovered/Resolved]

NARRATIVE: CASE EVENT DATE: 20230321
